FAERS Safety Report 6739860-8 (Version None)
Quarter: 2010Q2

REPORT INFORMATION
  Report Type: 
  Country: None (occurrence: None)
  Receive Date: 20100525
  Receipt Date: 20100518
  Transmission Date: 20101027
  Serious: Yes (Hospitalization)
  Sender: FDA-Public Use
  Company Number: PHHO2010ES05029

PATIENT
  Sex: Male

DRUGS (3)
  1. MYFORTIC [Suspect]
     Indication: RENAL TRANSPLANT
     Dosage: 1080MG ,DAILY
     Route: 048
     Dates: start: 20071212
  2. TACROLIMUS [Suspect]
     Indication: RENAL TRANSPLANT
     Dosage: 1MG, DAILY
     Route: 048
     Dates: start: 20071212
  3. TACROLIMUS [Suspect]
     Dosage: 1.5MG, DAILY
     Route: 048

REACTIONS (5)
  - HYDRONEPHROSIS [None]
  - KLEBSIELLA SEPSIS [None]
  - NEPHROSTOMY [None]
  - OBSTRUCTIVE UROPATHY [None]
  - RENAL FAILURE ACUTE [None]
